FAERS Safety Report 7109858-9 (Version None)
Quarter: 2010Q4

REPORT INFORMATION
  Report Type: 
  Country: None (occurrence: None)
  Receive Date: 20101118
  Receipt Date: 20101108
  Transmission Date: 20110411
  Serious: Yes (Other)
  Sender: FDA-Public Use
  Company Number: DE-JNJFOC-20101102544

PATIENT
  Age: 76 Year
  Sex: Male

DRUGS (9)
  1. RISPERDAL [Suspect]
     Indication: ILL-DEFINED DISORDER
     Route: 048
     Dates: start: 20100526, end: 20100614
  2. DIPIPERON [Suspect]
     Indication: ILL-DEFINED DISORDER
     Route: 048
     Dates: start: 20100610, end: 20100613
  3. QUILONUM RETARD [Interacting]
     Indication: ILL-DEFINED DISORDER
     Route: 048
  4. MELPERON [Interacting]
     Indication: ILL-DEFINED DISORDER
     Route: 048
  5. ASPIRIN [Concomitant]
     Route: 048
     Dates: end: 20100614
  6. HCT HEXAL [Concomitant]
     Route: 048
     Dates: end: 20100622
  7. RAMIPRIL [Concomitant]
     Route: 048
  8. TOREM [Concomitant]
     Route: 048
  9. TOREM [Concomitant]
     Route: 048

REACTIONS (2)
  - DRUG INTERACTION [None]
  - PLEUROTHOTONUS [None]
